FAERS Safety Report 12280677 (Version 2)
Quarter: 2017Q1

REPORT INFORMATION
  Report Type: Spontaneous
  Country: JP (occurrence: JP)
  Receive Date: 20160419
  Receipt Date: 20170316
  Transmission Date: 20170428
  Serious: Yes (Other)
  Sender: FDA-Public Use
  Company Number: JP-AMGEN-JPNSP2016048687

PATIENT
  Age: 74 Year
  Sex: Female

DRUGS (3)
  1. CALCIUM FOLINATE [Concomitant]
     Active Substance: LEUCOVORIN CALCIUM
     Indication: COLON CANCER
     Dosage: UNK
     Route: 048
  2. UFT [Concomitant]
     Active Substance: TEGAFUR\URACIL
     Indication: COLON CANCER
     Dosage: UNK
     Route: 048
  3. VECTIBIX [Suspect]
     Active Substance: PANITUMUMAB
     Indication: COLON CANCER
     Dosage: 160 MG, Q2WEEKS
     Route: 041
     Dates: start: 20160405

REACTIONS (1)
  - Syncope [Recovered/Resolved]

NARRATIVE: CASE EVENT DATE: 20160406
